FAERS Safety Report 7422869-9 (Version None)
Quarter: 2011Q2

REPORT INFORMATION
  Report Type: 
  Country: None (occurrence: None)
  Receive Date: 20110419
  Receipt Date: 20110414
  Transmission Date: 20111010
  Serious: Yes (Other)
  Sender: FDA-Public Use
  Company Number: BR-PFIZER INC-2011082123

PATIENT
  Age: 45 Year
  Sex: Female
  Weight: 86.5 kg

DRUGS (2)
  1. PRISTIQ [Suspect]
     Indication: MAJOR DEPRESSION
     Dosage: 50 MG, 1X/DAY
     Route: 048
     Dates: start: 20110314
  2. PIROXICAM [Suspect]
     Dosage: UNK
     Dates: start: 20110101

REACTIONS (3)
  - HAEMORRHAGE [None]
  - INCREASED APPETITE [None]
  - WEIGHT INCREASED [None]
